FAERS Safety Report 7397361-0 (Version None)
Quarter: 2011Q1

REPORT INFORMATION
  Report Type: 
  Country: None (occurrence: None)
  Receive Date: 20110328
  Receipt Date: 20110317
  Transmission Date: 20110831
  Serious: Yes (Life-Threatening, Hospitalization, Other)
  Sender: FDA-Public Use
  Company Number: 2011030079

PATIENT
  Age: 60 Year
  Sex: Male

DRUGS (5)
  1. ZOFRAN [Concomitant]
  2. PHENERGAN [Concomitant]
  3. ONSOLIS [Suspect]
     Indication: CANCER PAIN
     Dosage: TITRATE UP TO 4 FILMS/DOSE (200 MCG,UP TO 4 TIMES DAILY), BU; 2400 MCG (600 MCG,4 IN 1 D), BU
     Route: 002
     Dates: start: 20100806
  4. RESTORIL [Concomitant]
  5. EXALO (HYDROMORPHONE HCL) [Concomitant]

REACTIONS (3)
  - PARALYSIS [None]
  - KIDNEY INFECTION [None]
  - MYOCARDIAL INFARCTION [None]
